FAERS Safety Report 15386054 (Version 1)
Quarter: 2018Q3

REPORT INFORMATION
  Report Type: Spontaneous
  Country: US (occurrence: US)
  Receive Date: 20180914
  Receipt Date: 20180914
  Transmission Date: 20181010
  Serious: No
  Sender: FDA-Public Use
  Company Number: US-HORIZON-DUE-0480-2018

PATIENT
  Age: 63 Year
  Sex: Female

DRUGS (6)
  1. DUEXIS [Suspect]
     Active Substance: FAMOTIDINE\IBUPROFEN
     Indication: BACK PAIN
     Dosage: 1 TAB PO TID
     Route: 048
     Dates: start: 201808, end: 20180909
  2. RELAFEN [Concomitant]
     Active Substance: NABUMETONE
  3. VITAMIN C [Concomitant]
     Active Substance: ASCORBIC ACID
  4. NEURONTIN [Concomitant]
     Active Substance: GABAPENTIN
  5. BABY ASPIRIN [Concomitant]
     Active Substance: ASPIRIN
  6. PERCOCET [Concomitant]
     Active Substance: ACETAMINOPHEN\OXYCODONE HYDROCHLORIDE

REACTIONS (1)
  - Somnolence [Unknown]

NARRATIVE: CASE EVENT DATE: 20180808
